FAERS Safety Report 9465337 (Version 1)
Quarter: 2013Q3

REPORT INFORMATION
  Report Type: Spontaneous
  Country: AU (occurrence: AU)
  Receive Date: 20130820
  Receipt Date: 20130820
  Transmission Date: 20140515
  Serious: Yes (Hospitalization, Other)
  Sender: FDA-Public Use
  Company Number: AU-009507513-1308AUS007923

PATIENT
  Age: 88 Year
  Sex: Female

DRUGS (12)
  1. NITROGLYCERIN [Suspect]
     Dosage: 5 MG, QD
     Route: 061
     Dates: start: 20120628
  2. BUPRENORPHINE HYDROCHLORIDE [Suspect]
     Dosage: 5 MICROGRAM, QW
     Route: 061
     Dates: start: 20130314
  3. CLOPIDOGREL [Suspect]
     Dosage: `75 MG, QD
     Route: 048
     Dates: start: 20120628
  4. ENDONE [Suspect]
     Dosage: 5 MG, PRN
     Dates: start: 20130308
  5. FUROSEMIDE [Suspect]
     Dosage: 40 MG, QD
     Route: 048
     Dates: start: 20120628
  6. ACETAMINOPHEN [Suspect]
     Dosage: 3990 MG, QD
     Route: 048
     Dates: start: 20121030
  7. RAMIPRIL [Suspect]
     Dosage: 10 MG, QD
     Route: 048
     Dates: start: 20120626
  8. ALBUTEROL [Suspect]
     Dosage: 1200 MICROGRAM, UNK
     Route: 055
     Dates: start: 20100902
  9. SPIRONOLACTONE [Suspect]
     Dosage: 25 MG, QD
     Route: 048
     Dates: start: 20130304
  10. SYMBICORT TURBUHALER [Suspect]
     Dosage: 2 DF, QD
     Route: 055
     Dates: start: 20101124
  11. TEMAZEPAM [Suspect]
     Dosage: 10 MG, PRN
     Route: 048
     Dates: start: 20110408
  12. TERBUTALINE SULFATE [Suspect]
     Dosage: 2000 MICROGRAM, UNK
     Route: 055
     Dates: start: 20100902

REACTIONS (2)
  - Angioedema [Not Recovered/Not Resolved]
  - Deafness [Not Recovered/Not Resolved]
